FAERS Safety Report 5974212-X (Version None)
Quarter: 2008Q4

REPORT INFORMATION
  Report Type: 
  Country: None (occurrence: None)
  Receive Date: 20081201
  Receipt Date: 20081127
  Transmission Date: 20090506
  Serious: Yes (Other)
  Sender: FDA-Public Use
  Company Number: AR-PFIZER INC-2008083995

PATIENT
  Sex: Male
  Weight: 104 kg

DRUGS (1)
  1. ZITHROMAX [Suspect]
     Indication: CHLAMYDIAL INFECTION
     Route: 048
     Dates: start: 20080801

REACTIONS (2)
  - AZOOSPERMIA [None]
  - SPERMATOZOA PROGRESSIVE MOTILITY DECREASED [None]
